FAERS Safety Report 7838422-9 (Version None)
Quarter: 2011Q4

REPORT INFORMATION
  Report Type: 
  Country: None (occurrence: None)
  Receive Date: 20111024
  Receipt Date: 20111014
  Transmission Date: 20120403
  Serious: Yes (Hospitalization, Other)
  Sender: FDA-Public Use
  Company Number: US-MERCK-1109USA00304

PATIENT
  Age: 67 Year
  Sex: Female

DRUGS (4)
  1. FOSAMAX [Suspect]
     Indication: OSTEOPOROSIS
     Route: 048
     Dates: start: 20050301, end: 20090301
  2. OMEGA-3 MARINE TRIGLYCERIDES [Concomitant]
     Route: 065
     Dates: start: 20010101
  3. CALCIUM (UNSPECIFIED) [Concomitant]
     Route: 065
     Dates: start: 20000101
  4. VITAMIN D (UNSPECIFIED) [Concomitant]
     Route: 065
     Dates: start: 20000101

REACTIONS (14)
  - APPENDICITIS [None]
  - ECCHYMOSIS [None]
  - FALL [None]
  - NEUROMA [None]
  - DIVERTICULUM [None]
  - ADHESION [None]
  - TOOTH DISORDER [None]
  - ARTHRALGIA [None]
  - SCAR PAIN [None]
  - GASTROOESOPHAGEAL REFLUX DISEASE [None]
  - OSTEOARTHRITIS [None]
  - FOOT DEFORMITY [None]
  - FEMORAL NECK FRACTURE [None]
  - GALLBLADDER DISORDER [None]
